FAERS Safety Report 4902605-8 (Version None)
Quarter: 2006Q1

REPORT INFORMATION
  Report Type: 
  Country: None (occurrence: None)
  Receive Date: 20060207
  Receipt Date: 20040630
  Transmission Date: 20060701
  Serious: Yes (Life-Threatening, Hospitalization)
  Sender: FDA-Public Use
  Company Number: PHHO2004BR09351

PATIENT
  Age: 74 Year
  Sex: Male
  Weight: 68.5 kg

DRUGS (3)
  1. VALSARTAN [Suspect]
     Dosage: 160 MG
     Route: 048
     Dates: start: 20021002, end: 20041026
  2. NATEGLINIDE [Suspect]
     Indication: DIABETES MELLITUS NON-INSULIN-DEPENDENT
     Dosage: 60 MG  AC
     Route: 048
     Dates: start: 20021002, end: 20041026
  3. AMLODIPINE [Concomitant]
     Indication: HYPERTENSION

REACTIONS (16)
  - ANAEMIA [None]
  - ANGIODYSPLASIA [None]
  - ARTERIOVENOUS MALFORMATION [None]
  - ASTHENIA [None]
  - CHEST PAIN [None]
  - COLONIC POLYP [None]
  - CONCOMITANT DISEASE PROGRESSION [None]
  - DIVERTICULUM INTESTINAL [None]
  - ENTERECTOMY [None]
  - EPISTAXIS [None]
  - FAECES DISCOLOURED [None]
  - GASTRITIS [None]
  - GASTROINTESTINAL HAEMORRHAGE [None]
  - HAEMORRHAGE CONTROL [None]
  - HYPERTENSION [None]
  - SMALL INTESTINAL HAEMORRHAGE [None]
